FAERS Safety Report 8223383-3 (Version None)
Quarter: 2012Q1

REPORT INFORMATION
  Report Type: 
  Country: None (occurrence: None)
  Receive Date: 20120312
  Receipt Date: 20120228
  Transmission Date: 20120608
  Serious: Yes (Hospitalization)
  Sender: FDA-Public Use
  Company Number: 7116278

PATIENT
  Age: 80 Year
  Sex: Female

DRUGS (11)
  1. PURAN T4 (LEVOTHYROXINE SODIUM) [Concomitant]
  2. ATENSINA (CLONIDINE HYDROCHLORIDE) [Concomitant]
  3. RASILEZ (RABIES VACCINE) [Concomitant]
  4. BISOPROLOL FUMARATE [Concomitant]
  5. CLOPIDOGREL [Concomitant]
  6. JANUVIA [Concomitant]
  7. CLOPIN (CLOZAPINE) [Concomitant]
  8. LEVOTHYROXINE SODIUM [Suspect]
     Indication: HYPOTHYROIDISM
     Dosage: 75 MCG (75 MCG, 1 IN 1 D)
  9. GLIFAGE XR (METFORMIN) [Concomitant]
  10. CRESTOR [Concomitant]
  11. INDAPAMIDE [Concomitant]

REACTIONS (6)
  - TACHYCARDIA [None]
  - ABDOMINAL DISTENSION [None]
  - FLATULENCE [None]
  - ABDOMINAL PAIN [None]
  - DIARRHOEA [None]
  - ARTERIAL OCCLUSIVE DISEASE [None]
